FAERS Safety Report 10268715 (Version 1)
Quarter: 2014Q2

REPORT INFORMATION
  Report Type: Spontaneous
  Country: IT (occurrence: IT)
  Receive Date: 20140630
  Receipt Date: 20140630
  Transmission Date: 20141212
  Serious: Yes (Other)
  Sender: FDA-Public Use
  Company Number: IT-ACTAVIS-2014-13763

PATIENT
  Age: 52 Year
  Sex: Male

DRUGS (2)
  1. PHENOBARBITAL (UNKNOWN) [Suspect]
     Indication: EPILEPSY
     Dosage: 200 MG, DAILY
     Route: 065
  2. CARBAMAZEPINE (UNKNOWN) [Suspect]
     Indication: EPILEPSY
     Dosage: UNK
     Route: 065

REACTIONS (3)
  - Osteomalacia [Recovered/Resolved]
  - Myopathy [Recovered/Resolved]
  - Vitamin D decreased [Unknown]
